FAERS Safety Report 10652838 (Version 4)
Quarter: 2015Q1

REPORT INFORMATION
  Report Type: Spontaneous
  Country: JP (occurrence: JP)
  Receive Date: 20141215
  Receipt Date: 20150217
  Transmission Date: 20150720
  Serious: Yes (Life-Threatening, Hospitalization, Disabling, Other)
  Sender: FDA-Public Use
  Company Number: PHHY2014JP162093

PATIENT
  Age: 54 Year
  Sex: Female
  Weight: 45 kg

DRUGS (3)
  1. PREDNISOLONE. [Concomitant]
     Active Substance: PREDNISOLONE
     Indication: DEAFNESS
     Dosage: 10 MG, TID
     Route: 065
     Dates: start: 20141125, end: 20141215
  2. AFINITOR [Suspect]
     Active Substance: EVEROLIMUS
     Indication: BREAST CANCER
     Dosage: 10 MG, QD
     Route: 048
     Dates: start: 20141118, end: 20141205
  3. AROMASIN [Concomitant]
     Active Substance: EXEMESTANE
     Indication: BREAST CANCER RECURRENT
     Dosage: 25 MG, QD
     Route: 065
     Dates: start: 20141118

REACTIONS (8)
  - Fall [Recovered/Resolved]
  - Epistaxis [Recovering/Resolving]
  - Asphyxia [Recovered/Resolved]
  - Anaemia [Recovered/Resolved]
  - Deafness neurosensory [Not Recovered/Not Resolved]
  - Loss of consciousness [Recovered/Resolved]
  - Thrombosis [Recovering/Resolving]
  - Metastases to central nervous system [Not Recovered/Not Resolved]

NARRATIVE: CASE EVENT DATE: 20141125
